FAERS Safety Report 25985616 (Version 1)
Quarter: 2025Q4

REPORT INFORMATION
  Report Type: Spontaneous
  Country: US (occurrence: US)
  Receive Date: 20251031
  Receipt Date: 20251031
  Transmission Date: 20260117
  Serious: Yes (Other)
  Sender: NOVO NORDISK
  Company Number: US-NOVOPROD-1550085

PATIENT
  Sex: Male

DRUGS (1)
  1. NOVOLOG [Suspect]
     Active Substance: INSULIN ASPART
     Indication: Type 2 diabetes mellitus
     Dosage: WITH EACH MEAL OR SNACK SLIDING SCALE 5-10 UNITS
     Route: 058

REACTIONS (2)
  - COVID-19 [Unknown]
  - Deafness unilateral [Not Recovered/Not Resolved]
